FAERS Safety Report 11967133 (Version 4)
Quarter: 2016Q3

REPORT INFORMATION
  Report Type: Spontaneous
  Country: US (occurrence: US)
  Receive Date: 20160127
  Receipt Date: 20160913
  Transmission Date: 20161109
  Serious: No
  Sender: FDA-Public Use
  Company Number: US-PFIZER INC-2016043768

PATIENT
  Age: 66 Year
  Sex: Female
  Weight: 68.4 kg

DRUGS (3)
  1. LYRICA [Suspect]
     Active Substance: PREGABALIN
     Indication: POLYMYOSITIS
     Dosage: 150 MG, 3X/DAY
     Route: 048
  2. 123 [Concomitant]
     Dosage: UNK, DAILY
  3. LYRICA [Suspect]
     Active Substance: PREGABALIN
     Dosage: 10/325 MG, 3X/DAY
     Route: 048
     Dates: end: 20151231

REACTIONS (4)
  - Pre-existing condition improved [Unknown]
  - Therapeutic response unexpected [Unknown]
  - Pain [Not Recovered/Not Resolved]
  - Drug withdrawal syndrome [Unknown]

NARRATIVE: CASE EVENT DATE: 201512
